FAERS Safety Report 14262767 (Version 1)
Quarter: 2017Q4

REPORT INFORMATION
  Report Type: Spontaneous
  Country: US (occurrence: US)
  Receive Date: 20171208
  Receipt Date: 20171208
  Transmission Date: 20180321
  Serious: No
  Sender: FDA-Public Use
  Company Number: US-LEO PHARMA-306003

PATIENT
  Sex: Female

DRUGS (1)
  1. PICATO [Suspect]
     Active Substance: INGENOL MEBUTATE
     Indication: ACTINIC KERATOSIS
     Dosage: PATIENT COMPLETED 3 DAYS OF THERAPY APPROXIMATELY ON OCTOBER 4, 2017
     Route: 061

REACTIONS (1)
  - Herpes zoster [Recovered/Resolved]
